FAERS Safety Report 5252300-3 (Version None)
Quarter: 2007Q1

REPORT INFORMATION
  Report Type: 
  Country: None (occurrence: None)
  Receive Date: 20070301
  Receipt Date: 20060131
  Transmission Date: 20070707
  Serious: No
  Sender: FDA-Public Use
  Company Number: US-BRISTOL-MYERS SQUIBB COMPANY-13264809

PATIENT
  Age: 43 Year
  Sex: Female
  Weight: 49 kg

DRUGS (6)
  1. PACLITAXEL [Suspect]
     Indication: OVARIAN CANCER
     Route: 042
     Dates: start: 20060124, end: 20060124
  2. ARANESP [Concomitant]
  3. ZANTAC [Concomitant]
     Indication: PREMEDICATION
     Route: 042
  4. DIPHENHYDRAMINE HCL [Concomitant]
     Indication: PREMEDICATION
     Route: 042
  5. DEXAMETHASONE [Concomitant]
     Indication: PREMEDICATION
     Route: 042
  6. PALONOSETRON [Concomitant]
     Indication: PREMEDICATION
     Route: 042

REACTIONS (1)
  - LIVER FUNCTION TEST ABNORMAL [None]
